FAERS Safety Report 6763450-4 (Version None)
Quarter: 2010Q2

REPORT INFORMATION
  Report Type: 
  Country: None (occurrence: None)
  Receive Date: 20100610
  Receipt Date: 20100527
  Transmission Date: 20101027
  Serious: Yes (Other)
  Sender: FDA-Public Use
  Company Number: US-ELI_LILLY_AND_COMPANY-US201005002328

PATIENT
  Sex: Female

DRUGS (18)
  1. FORTEO [Suspect]
     Indication: OSTEOPOROSIS
     Dosage: 20 UG, DAILY (1/D)
     Route: 065
     Dates: start: 20100505
  2. PLAVIX [Concomitant]
     Dosage: 75 MG, DAILY (1/D)
  3. BENICAR [Concomitant]
     Dosage: 40 MG, DAILY (1/D)
  4. COREG [Concomitant]
     Dosage: 6.25 MG, 2/D
  5. COREG [Concomitant]
     Dosage: UNK, DAILY (1/D)
  6. VYTORIN [Concomitant]
     Dosage: 1 D/F, DAILY (1/D)
  7. PREDNISONE [Concomitant]
     Dosage: 1 MG, DAILY (1/D)
  8. PRILOSEC [Concomitant]
     Dosage: 20 MG, DAILY (1/D)
  9. ASPIRIN [Concomitant]
     Dosage: 1 D/F, DAILY (1/D)
  10. MIRAPEX [Concomitant]
     Indication: RESTLESS LEGS SYNDROME
     Dosage: 0.5 MG, DAILY (1/D)
  11. CALTRATE 600 + D [Concomitant]
     Dosage: 1 D/F, 2/D
  12. CALTRATE 600 + D [Concomitant]
     Dosage: 2 D/F, 2/D
  13. CENTRUM SILVER [Concomitant]
     Dosage: UNK, DAILY (1/D)
  14. MAGNESIUM OXIDE [Concomitant]
     Indication: MUSCLE SPASMS
     Dosage: 400 MG, DAILY (1/D)
  15. MAGNESIUM OXIDE [Concomitant]
     Dosage: 4 MG, DAILY (1/D)
  16. LASIX [Concomitant]
     Dosage: 20 MG, DAILY (1/D)
  17. KLOR-CON [Concomitant]
     Dosage: 10 MG, 2/D
  18. HYDROCODONE BITARTRATE AND ACETAMINOPHEN [Concomitant]
     Dosage: UNK, AS NEEDED

REACTIONS (8)
  - BACK PAIN [None]
  - DIZZINESS [None]
  - DYSPNOEA [None]
  - FATIGUE [None]
  - FEELING ABNORMAL [None]
  - HYPOTENSION [None]
  - MUSCULAR WEAKNESS [None]
  - NAUSEA [None]
